FAERS Safety Report 9448194 (Version 1)
Quarter: 2013Q3

REPORT INFORMATION
  Report Type: Spontaneous
  Country: US (occurrence: None)
  Receive Date: 20130807
  Receipt Date: 20130807
  Transmission Date: 20140515
  Serious: Yes (Other)
  Sender: FDA-Public Use
  Company Number: None

PATIENT
  Sex: Female
  Weight: 92.08 kg

DRUGS (2)
  1. PYRIDOSTIGMINE [Suspect]
     Indication: MYASTHENIA GRAVIS
     Dosage: UNKNOWN PRIOR TO 10/05/2012
  2. PYRIDOSTIGMINE [Suspect]
     Indication: MYASTHENIA GRAVIS
     Dosage: UNKNOWN - PRIOR TO 10/5/2012

REACTIONS (7)
  - Nausea [None]
  - Vomiting [None]
  - Dyspnoea [None]
  - Condition aggravated [None]
  - Asthenia [None]
  - Dysphagia [None]
  - No therapeutic response [None]
